FAERS Safety Report 4781029-0 (Version None)
Quarter: 2005Q3

REPORT INFORMATION
  Report Type: 
  Country: None (occurrence: None)
  Receive Date: 20050926
  Receipt Date: 20050913
  Transmission Date: 20060218
  Serious: Yes (Hospitalization)
  Sender: FDA-Public Use
  Company Number: 2005-03456

PATIENT
  Age: 34 Year
  Sex: Female

DRUGS (2)
  1. FLUOXETINE [Suspect]
     Indication: DEPRESSION
     Dosage: 20 MG, DAILY, ORAL
     Route: 048
  2. TEGASEROD (TEGASEROD) [Suspect]
     Indication: IRRITABLE BOWEL SYNDROME
     Dosage: STARTED 6MG/KG BID, ORAL
     Route: 048

REACTIONS (6)
  - DIZZINESS [None]
  - DRUG INTERACTION [None]
  - DYSPNOEA [None]
  - FEAR [None]
  - PALPITATIONS [None]
  - PANIC ATTACK [None]
